FAERS Safety Report 4775037-3 (Version None)
Quarter: 2005Q3

REPORT INFORMATION
  Report Type: 
  Country: None (occurrence: None)
  Receive Date: 20050920
  Receipt Date: 20050909
  Transmission Date: 20060218
  Serious: Yes (Other)
  Sender: FDA-Public Use
  Company Number: 2005077452

PATIENT
  Sex: Female

DRUGS (1)
  1. DOSTINEX [Suspect]
     Indication: HYPOPROLACTINAEMIA
     Dosage: 0.5 MG (0.5 MG, SINGLE, INTERVAL: TWICE A WEEK), ORAL
     Route: 048
     Dates: start: 20050512, end: 20050516

REACTIONS (6)
  - ABDOMINAL PAIN [None]
  - ANAEMIA [None]
  - BACK PAIN [None]
  - BREAST PAIN [None]
  - INFECTION [None]
  - PAIN IN EXTREMITY [None]
